FAERS Safety Report 5674936-8 (Version None)
Quarter: 2008Q1

REPORT INFORMATION
  Report Type: 
  Country: None (occurrence: None)
  Receive Date: 20080320
  Receipt Date: 20080313
  Transmission Date: 20080703
  Serious: Yes (Life-Threatening, Other)
  Sender: FDA-Public Use
  Company Number: DE-ELI_LILLY_AND_COMPANY-DE200803003137

PATIENT
  Sex: Male
  Weight: 94 kg

DRUGS (9)
  1. BYETTA [Suspect]
     Dosage: 5 UG, 2/D
     Route: 058
     Dates: start: 20080212, end: 20080227
  2. PANTOZOL [Concomitant]
     Indication: PROPHYLAXIS AGAINST GASTROINTESTINAL ULCER
     Dosage: UNK, EVERY OTHER DAY
     Route: 048
     Dates: start: 20080209
  3. VOLTAREN                                /SCH/ [Concomitant]
     Indication: ARTHRALGIA
     Dosage: 75 MG, 2/D
     Route: 048
     Dates: start: 20080207
  4. METFORMIN HCL [Concomitant]
     Dosage: 1000 MG, 2/D
     Route: 065
  5. NOVONORM [Concomitant]
     Dosage: 3 MG, 2/D
     Route: 065
  6. BISOHEXAL [Concomitant]
     Dosage: 5 MG, EVERY OTHER DAY
     Route: 065
  7. ASPIRIN [Concomitant]
     Dosage: 100 MG, OTHER
     Route: 065
  8. DELIX [Concomitant]
     Dosage: 10 MG, EVERY OTHER DAY
     Route: 065
  9. VALORON [Concomitant]
     Dosage: 50 MG, EVERY OTHER DAY

REACTIONS (5)
  - ANGINA PECTORIS [None]
  - CORONARY ARTERY DISEASE [None]
  - DYSPNOEA [None]
  - NAUSEA [None]
  - VOMITING [None]
